FAERS Safety Report 7200322-5 (Version None)
Quarter: 2010Q4

REPORT INFORMATION
  Report Type: 
  Country: None (occurrence: None)
  Receive Date: 20101228
  Receipt Date: 20101215
  Transmission Date: 20110411
  Serious: Yes (Other)
  Sender: FDA-Public Use
  Company Number: B0690743A

PATIENT
  Age: 62 Year
  Sex: Male

DRUGS (3)
  1. SERETIDE [Suspect]
     Indication: OESOPHAGEAL CANDIDIASIS
     Dosage: 1PUFF TWICE PER DAY
     Route: 048
     Dates: start: 20070101
  2. SALMETEROL [Suspect]
     Indication: OESOPHAGEAL CANDIDIASIS
     Dosage: 1PUFF TWICE PER DAY
     Route: 048
  3. FLUTICASONE PROPIONATE [Suspect]
     Indication: OESOPHAGEAL CANDIDIASIS
     Dosage: 1PUFF TWICE PER DAY
     Route: 048

REACTIONS (2)
  - BACTERIAL TEST POSITIVE [None]
  - OESOPHAGEAL CANDIDIASIS [None]
